FAERS Safety Report 7318377-6 (Version None)
Quarter: 2011Q1

REPORT INFORMATION
  Report Type: 
  Country: None (occurrence: None)
  Receive Date: 20110218
  Receipt Date: 20110218
  Transmission Date: 20110831
  Serious: Yes (Hospitalization)
  Sender: FDA-Public Use
  Company Number: None

PATIENT
  Sex: Female
  Weight: 53.86 kg

DRUGS (2)
  1. ZOLEDRONIC ACID [Suspect]
     Dosage: 4 MG
  2. ZOLEDRONIC ACID (ZOLENDRONATE, ZOMETA) [Suspect]
     Dosage: 4 MG

REACTIONS (10)
  - PAIN [None]
  - CHILLS [None]
  - MENTAL STATUS CHANGES [None]
  - PATHOLOGICAL FRACTURE [None]
  - HAEMATOTOXICITY [None]
  - TRANSFUSION-RELATED ACUTE LUNG INJURY [None]
  - HYPOTENSION [None]
  - ANAEMIA [None]
  - ILIUM FRACTURE [None]
  - PYREXIA [None]
